FAERS Safety Report 19922666 (Version 1)
Quarter: 2021Q4

REPORT INFORMATION
  Report Type: Spontaneous
  Country: US (occurrence: US)
  Receive Date: 20211005
  Receipt Date: 20211005
  Transmission Date: 20220303
  Serious: No
  Sender: FDA-Public Use
  Company Number: None

PATIENT
  Age: 46 Year
  Sex: Female
  Weight: 69.75 kg

DRUGS (10)
  1. SCOPOLAMINE TRANDERMAL SYSTEM [Suspect]
     Active Substance: SCOPOLAMINE
     Indication: Prophylaxis against motion sickness
     Dosage: ?          QUANTITY:1 PATCH(ES);OTHER FREQUENCY:EVERY 3 DAYS;
     Route: 062
     Dates: start: 20210930, end: 20211005
  2. BISOPROLOL [Concomitant]
     Active Substance: BISOPROLOL
  3. FIORICET [Concomitant]
     Active Substance: ACETAMINOPHEN\BUTALBITAL\CAFFEINE
  4. ATARAX [Concomitant]
     Active Substance: HYDROXYZINE HYDROCHLORIDE
  5. SPIRONOLACTONE [Concomitant]
     Active Substance: SPIRONOLACTONE
  6. VITAMIN A [Concomitant]
     Active Substance: VITAMIN A
  7. VITAMIN C [Concomitant]
     Active Substance: ASCORBIC ACID
  8. VITAMIN K [Concomitant]
     Active Substance: PHYTONADIONE
  9. INOSITOL [Concomitant]
     Active Substance: INOSITOL
  10. PROBIOTICS NOS [Concomitant]
     Active Substance: PROBIOTICS NOS

REACTIONS (1)
  - Drug ineffective [None]

NARRATIVE: CASE EVENT DATE: 20210930
